FAERS Safety Report 14865283 (Version 1)
Quarter: 2018Q2

REPORT INFORMATION
  Report Type: Spontaneous
  Country: US (occurrence: US)
  Receive Date: 20180508
  Receipt Date: 20180508
  Transmission Date: 20180711
  Serious: No
  Sender: FDA-Public Use
  Company Number: US-ALKERMES INC.-ALK-2017-005076

PATIENT
  Age: 19 Year
  Sex: Female

DRUGS (2)
  1. RIFAMPIN. [Suspect]
     Active Substance: RIFAMPIN
     Indication: ANTIBIOTIC PROPHYLAXIS
  2. VIVITROL [Suspect]
     Active Substance: NALTREXONE
     Indication: DRUG DEPENDENCE
     Dosage: 380 MG, QMO
     Route: 030

REACTIONS (8)
  - Treatment noncompliance [Unknown]
  - Drug dependence [Unknown]
  - Dental operation [Unknown]
  - Homeless [Unknown]
  - Substance use [Unknown]
  - Decreased appetite [Unknown]
  - Dehydration [Unknown]
  - Somnolence [Unknown]
